FAERS Safety Report 15578804 (Version 1)
Quarter: 2018Q4

REPORT INFORMATION
  Report Type: Report from Study
  Country: US (occurrence: US)
  Receive Date: 20181102
  Receipt Date: 20181102
  Transmission Date: 20190205
  Serious: No
  Sender: FDA-Public Use
  Company Number: PHEH2018US045659

PATIENT
  Sex: Female

DRUGS (1)
  1. ENTRESTO [Suspect]
     Active Substance: SACUBITRIL\VALSARTAN
     Indication: CARDIAC FAILURE
     Dosage: 1 DF(24 MG SACUBITRIL, 26 MG VALSARTAN), BID
     Route: 048
     Dates: start: 201808

REACTIONS (3)
  - Condition aggravated [Unknown]
  - Dizziness [Unknown]
  - Photophobia [Unknown]
